FAERS Safety Report 6168627-7 (Version None)
Quarter: 2009Q2

REPORT INFORMATION
  Report Type: 
  Country: None (occurrence: None)
  Receive Date: 20090424
  Receipt Date: 20090424
  Transmission Date: 20091009
  Serious: No
  Sender: FDA-Public Use
  Company Number: None

PATIENT
  Age: 49 Year
  Sex: Male
  Weight: 139.2543 kg

DRUGS (1)
  1. CIPRO [Suspect]
     Indication: INFECTION
     Dosage: 500MG TWICE PER DAY PO
     Route: 048
     Dates: start: 20090420, end: 20090420

REACTIONS (2)
  - PAIN IN EXTREMITY [None]
  - TENDON PAIN [None]
